FAERS Safety Report 6170360-2 (Version None)
Quarter: 2009Q2

REPORT INFORMATION
  Report Type: 
  Country: None (occurrence: None)
  Receive Date: 20090428
  Receipt Date: 20090421
  Transmission Date: 20091009
  Serious: Yes (Hospitalization)
  Sender: FDA-Public Use
  Company Number: JP-MERCK-0904USA03820

PATIENT
  Age: 66 Year
  Sex: Female

DRUGS (2)
  1. PEPCID [Suspect]
     Indication: GASTRITIS EROSIVE
     Route: 048
     Dates: start: 20090330
  2. TROXSIN [Suspect]
     Indication: GASTRITIS EROSIVE
     Route: 048
     Dates: start: 20090330

REACTIONS (1)
  - HERPES ZOSTER [None]
